FAERS Safety Report 5032812-8 (Version None)
Quarter: 2006Q2

REPORT INFORMATION
  Report Type: 
  Country: None (occurrence: None)
  Receive Date: 20060620
  Receipt Date: 20060524
  Transmission Date: 20061013
  Serious: Yes (Congenital Anomaly)
  Sender: FDA-Public Use
  Company Number: 2478

PATIENT
  Sex: 0

DRUGS (1)
  1. AMNESTEEM [Suspect]
     Route: 064

REACTIONS (3)
  - BODY HEIGHT BELOW NORMAL [None]
  - DRUG EXPOSURE DURING PREGNANCY [None]
  - VISUAL DISTURBANCE [None]
